FAERS Safety Report 22326819 (Version 1)
Quarter: 2023Q2

REPORT INFORMATION
  Report Type: Spontaneous
  Country: US (occurrence: US)
  Receive Date: 20230516
  Receipt Date: 20230516
  Transmission Date: 20230721
  Serious: No
  Sender: FDA-Public Use
  Company Number: US-RADIUS HEALTH INC.-2022US002000

PATIENT
  Age: 69 Year
  Sex: Female

DRUGS (1)
  1. TYMLOS [Suspect]
     Active Substance: ABALOPARATIDE
     Indication: Osteoporosis
     Dosage: 80 MCG, QD
     Route: 058
     Dates: start: 202203, end: 202303

REACTIONS (8)
  - Alopecia [Recovered/Resolved]
  - Weight increased [Recovered/Resolved]
  - Depression [Recovered/Resolved]
  - Contusion [Recovered/Resolved]
  - Bone density decreased [Unknown]
  - Abdominal distension [Recovered/Resolved]
  - Headache [Recovered/Resolved]
  - Nausea [Recovered/Resolved]

NARRATIVE: CASE EVENT DATE: 20220412
